FAERS Safety Report 5147979-0 (Version None)
Quarter: 2006Q4

REPORT INFORMATION
  Report Type: 
  Country: None (occurrence: None)
  Receive Date: 20061110
  Receipt Date: 20061023
  Transmission Date: 20070319
  Serious: Yes (Other)
  Sender: FDA-Public Use
  Company Number: 2006AP05080

PATIENT
  Age: 412 Day
  Sex: Female
  Weight: 11 kg

DRUGS (5)
  1. PULMICORT RESPULES [Suspect]
     Indication: ASTHMA
     Route: 055
     Dates: start: 20061011, end: 20061012
  2. ZADITEN [Concomitant]
     Indication: ASTHMA
     Route: 048
     Dates: start: 20060213
  3. PEMILASTON [Concomitant]
     Indication: ASTHMA
     Route: 048
     Dates: start: 20060501
  4. ONON DRYSYRUP [Concomitant]
     Indication: ASTHMA
     Route: 048
     Dates: start: 20060501
  5. THEOPHYLLINE [Concomitant]
     Indication: ASTHMA
     Route: 048
     Dates: start: 20060501

REACTIONS (2)
  - BINOCULAR EYE MOVEMENT DISORDER [None]
  - ERYTHEMA OF EYELID [None]
